FAERS Safety Report 24741602 (Version 1)
Quarter: 2024Q4

REPORT INFORMATION
  Report Type: Report from Study
  Country: CA (occurrence: CA)
  Receive Date: 20241217
  Receipt Date: 20241217
  Transmission Date: 20250114
  Serious: Yes (Other)
  Sender: NOVARTIS
  Company Number: CA-002147023-NVSC2024CA234956

PATIENT
  Age: 88 Year
  Sex: Male

DRUGS (2)
  1. ILARIS [Suspect]
     Active Substance: CANAKINUMAB
     Indication: Cryopyrin associated periodic syndrome
     Dosage: 150 MG (EVERY 8 WEEKS)
     Route: 058
     Dates: start: 20200327
  2. ILARIS [Suspect]
     Active Substance: CANAKINUMAB
     Indication: Muckle-Wells syndrome

REACTIONS (10)
  - Deafness neurosensory [Unknown]
  - Weight increased [Unknown]
  - Blood pressure systolic increased [Unknown]
  - Decreased activity [Unknown]
  - Pyrexia [Unknown]
  - Lethargy [Unknown]
  - Urticaria [Unknown]
  - Rash [Unknown]
  - Eye inflammation [Unknown]
  - Arthralgia [Unknown]
